FAERS Safety Report 9057185 (Version 1)
Quarter: 2013Q1

REPORT INFORMATION
  Report Type: Spontaneous
  Country: FR (occurrence: FR)
  Receive Date: 20130131
  Receipt Date: 20130131
  Transmission Date: 20140127
  Serious: Yes (Hospitalization, Other)
  Sender: FDA-Public Use
  Company Number: FR-ROCHE-1184503

PATIENT
  Age: 57 None
  Sex: Male

DRUGS (3)
  1. XELODA [Suspect]
     Indication: COLON CANCER
     Route: 048
     Dates: start: 20121127
  2. ELOXATIN [Suspect]
     Indication: COLON CANCER
     Route: 042
     Dates: start: 20121018, end: 20121228
  3. FLUOROURACIL [Suspect]
     Indication: COLON CANCER
     Dosage: FLUOROURACIL (PFIZER)
     Route: 042
     Dates: start: 20121018, end: 20121228

REACTIONS (3)
  - Palmar-plantar erythrodysaesthesia syndrome [Not Recovered/Not Resolved]
  - Polyneuropathy [Not Recovered/Not Resolved]
  - Condition aggravated [Not Recovered/Not Resolved]
